FAERS Safety Report 14938240 (Version 1)
Quarter: 2018Q2

REPORT INFORMATION
  Report Type: Spontaneous
  Country: US (occurrence: US)
  Receive Date: 20180507
  Receipt Date: 20180507
  Transmission Date: 20180711
  Serious: Yes (Life-Threatening, Hospitalization)
  Sender: FDA-Public Use
  Company Number: None

PATIENT
  Age: 39 Year
  Sex: Female

DRUGS (5)
  1. MVI [Concomitant]
     Active Substance: VITAMINS
  2. NAPROXEN. [Concomitant]
     Active Substance: NAPROXEN
  3. VITAMIN D [Concomitant]
     Active Substance: CHOLECALCIFEROL
  4. LEVOFLOXACIN. [Suspect]
     Active Substance: LEVOFLOXACIN
     Indication: KIDNEY INFECTION
     Dosage: ?          QUANTITY:1 TABLET(S);?
     Route: 048
  5. IBUPROFEN. [Concomitant]
     Active Substance: IBUPROFEN

REACTIONS (13)
  - Joint dislocation [None]
  - Fatigue [None]
  - Dyspnoea [None]
  - Blood pressure increased [None]
  - Pain in extremity [None]
  - Heart rate increased [None]
  - Visual impairment [None]
  - Fall [None]
  - Tremor [None]
  - Vertigo [None]
  - Peripheral coldness [None]
  - Arthralgia [None]
  - Cystitis interstitial [None]

NARRATIVE: CASE EVENT DATE: 20180407
